FAERS Safety Report 9056656 (Version 1)
Quarter: 2013Q1

REPORT INFORMATION
  Report Type: Spontaneous
  Country: US (occurrence: US)
  Receive Date: 20130204
  Receipt Date: 20130204
  Transmission Date: 20140127
  Serious: Yes (Hospitalization, Other)
  Sender: FDA-Public Use
  Company Number: US-PFIZER INC-2013042070

PATIENT
  Age: 44 Year
  Sex: Female
  Weight: 74.38 kg

DRUGS (1)
  1. PREMARIN [Suspect]
     Indication: HORMONE REPLACEMENT THERAPY
     Dosage: 0.625 MG, DAILY
     Dates: start: 1977

REACTIONS (3)
  - Pneumonia [Recovered/Resolved]
  - Depression [Recovered/Resolved]
  - Mood altered [Recovered/Resolved]
